APPROVED DRUG PRODUCT: LEVETIRACETAM
Active Ingredient: LEVETIRACETAM
Strength: 500MG/5ML (100MG/ML)
Dosage Form/Route: INJECTABLE;INTRAVENOUS
Application: A209474 | Product #001 | TE Code: AP
Applicant: PRINSTON PHARMACEUTICAL INC
Approved: Mar 28, 2022 | RLD: No | RS: No | Type: RX